FAERS Safety Report 17993345 (Version 1)
Quarter: 2020Q3

REPORT INFORMATION
  Report Type: Spontaneous
  Country: US (occurrence: US)
  Receive Date: 20200707
  Receipt Date: 20200707
  Transmission Date: 20201103
  Serious: Yes (Hospitalization)
  Sender: FDA-Public Use
  Company Number: None

PATIENT
  Age: 81 Year
  Sex: Male

DRUGS (2)
  1. BUMETANIDE (BUMETANIDE 2MG TAB) [Suspect]
     Active Substance: BUMETANIDE
     Indication: CARDIAC FAILURE CONGESTIVE
     Route: 048
     Dates: start: 20191031
  2. METOLAZONE (METOLAZONE 2.5MG TAB) [Suspect]
     Active Substance: METOLAZONE
     Dosage: ?          OTHER FREQUENCY:OTHER;?
     Route: 048
     Dates: start: 20180905, end: 20200422

REACTIONS (5)
  - Syncope [None]
  - Hyponatraemia [None]
  - Dizziness [None]
  - Fall [None]
  - Asthenia [None]

NARRATIVE: CASE EVENT DATE: 20200422
